FAERS Safety Report 17822940 (Version 1)
Quarter: 2020Q2

REPORT INFORMATION
  Report Type: Spontaneous
  Country: US (occurrence: US)
  Receive Date: 20200522
  Receipt Date: 20200522
  Transmission Date: 20200714
  Serious: No
  Sender: FDA-Public Use
  Company Number: None

PATIENT
  Sex: Male

DRUGS (1)
  1. HUMATROPE [Suspect]
     Active Substance: SOMATROPIN
     Indication: SHORT STATURE
     Dosage: ?          OTHER FREQUENCY:NIGHTLY;?
     Route: 058
     Dates: start: 20191023, end: 202005

REACTIONS (3)
  - Mood swings [None]
  - Pain [None]
  - Therapy cessation [None]
